FAERS Safety Report 20511532 (Version 1)
Quarter: 2022Q1

REPORT INFORMATION
  Report Type: Report from Study
  Country: CA (occurrence: CA)
  Receive Date: 20220224
  Receipt Date: 20220224
  Transmission Date: 20220423
  Serious: Yes (Hospitalization)
  Sender: FDA-Public Use
  Company Number: CA-TAKEDA-2022TUS011749

PATIENT
  Age: 59 Year
  Sex: Male

DRUGS (15)
  1. VEDOLIZUMAB [Suspect]
     Active Substance: VEDOLIZUMAB
     Indication: Colitis ulcerative
     Dosage: 300 MILLIGRAM
     Route: 042
     Dates: start: 20201214
  2. FLUOXETINE [Concomitant]
     Active Substance: FLUOXETINE HYDROCHLORIDE
     Dosage: UNK
  3. RAMIPRIL [Concomitant]
     Active Substance: RAMIPRIL
     Dosage: UNK
  4. LORAZEPAM [Concomitant]
     Active Substance: LORAZEPAM
     Dosage: UNK
  5. CLOMIPRAMINE [Concomitant]
     Active Substance: CLOMIPRAMINE
     Dosage: UNK
  6. NEVANAC [Concomitant]
     Active Substance: NEPAFENAC
     Dosage: UNK
  7. GATIFLOXACIN [Concomitant]
     Active Substance: GATIFLOXACIN
     Dosage: UNK
  8. METOPROLOL [Concomitant]
     Active Substance: METOPROLOL
     Dosage: UNK
  9. DENOSUMAB [Concomitant]
     Active Substance: DENOSUMAB
     Dosage: UNK
  10. ADALIMUMAB [Concomitant]
     Active Substance: ADALIMUMAB
     Dosage: UNK
  11. PANTOPRAZOLE SODIUM [Concomitant]
     Active Substance: PANTOPRAZOLE SODIUM
     Dosage: UNK
  12. XARELTO [Concomitant]
     Active Substance: RIVAROXABAN
     Dosage: UNK
  13. ZOPICLONE [Concomitant]
     Active Substance: ZOPICLONE
     Dosage: UNK
  14. ARIPIPRAZOLE [Concomitant]
     Active Substance: ARIPIPRAZOLE
     Dosage: UNK
  15. MIRABEGRON [Concomitant]
     Active Substance: MIRABEGRON
     Dosage: UNK

REACTIONS (6)
  - Hospitalisation [Unknown]
  - Blood pressure increased [Unknown]
  - Tinnitus [Recovered/Resolved]
  - Ear discomfort [Recovered/Resolved]
  - Hot flush [Recovered/Resolved]
  - Flushing [Recovered/Resolved]

NARRATIVE: CASE EVENT DATE: 20220216
